FAERS Safety Report 7786608-4 (Version None)
Quarter: 2011Q3

REPORT INFORMATION
  Report Type: 
  Country: None (occurrence: None)
  Receive Date: 20110929
  Receipt Date: 20110919
  Transmission Date: 20111222
  Serious: Yes (Hospitalization)
  Sender: FDA-Public Use
  Company Number: FR-ELI_LILLY_AND_COMPANY-FR201109005830

PATIENT
  Age: 64 Year
  Sex: Female

DRUGS (3)
  1. TOPALGIC                                /FRA/ [Concomitant]
     Indication: PAIN
     Dosage: UNK
  2. ACETAMINOPHEN [Concomitant]
     Indication: PAIN
     Dosage: UNK
  3. CYMBALTA [Suspect]
     Indication: DIABETIC NEUROPATHY
     Dosage: 60 MG, QD
     Route: 048
     Dates: start: 20110916, end: 20110917

REACTIONS (4)
  - VOMITING [None]
  - BRAIN OEDEMA [None]
  - NAUSEA [None]
  - HYPONATRAEMIA [None]
